FAERS Safety Report 11288253 (Version 5)
Quarter: 2016Q1

REPORT INFORMATION
  Report Type: Spontaneous
  Country: BR (occurrence: BR)
  Receive Date: 20150721
  Receipt Date: 20160304
  Transmission Date: 20160525
  Serious: Yes (Other)
  Sender: FDA-Public Use
  Company Number: BR-SA-2015SA104783

PATIENT
  Age: 62 Year
  Sex: Female

DRUGS (1)
  1. CEREZYME [Suspect]
     Active Substance: IMIGLUCERASE
     Indication: GAUCHER^S DISEASE
     Dosage: 8 VIALS, UNSPECIFIED FREQUENCY
     Route: 041
     Dates: start: 19951201

REACTIONS (8)
  - Limb injury [Recovered/Resolved]
  - Fall [Unknown]
  - Pain in extremity [Recovered/Resolved]
  - Gait disturbance [Recovering/Resolving]
  - Shoulder operation [Not Recovered/Not Resolved]
  - Muscular weakness [Not Recovered/Not Resolved]
  - Joint injury [Recovered/Resolved]
  - Muscle atrophy [Not Recovered/Not Resolved]

NARRATIVE: CASE EVENT DATE: 2015
